FAERS Safety Report 24649533 (Version 1)
Quarter: 2024Q4

REPORT INFORMATION
  Report Type: Spontaneous
  Country: US (occurrence: US)
  Receive Date: 20241121
  Receipt Date: 20241121
  Transmission Date: 20250115
  Serious: No
  Sender: ALEXION PHARMACEUTICALS
  Company Number: US-AstraZeneca-CH-00752316AP

PATIENT

DRUGS (4)
  1. FASENRA [Suspect]
     Active Substance: BENRALIZUMAB
     Dosage: 30 MILLIGRAM PER MILLILITRE, Q8W
     Route: 065
  2. FASENRA [Suspect]
     Active Substance: BENRALIZUMAB
     Dosage: 30 MILLIGRAM PER MILLILITRE, Q8W
  3. FASENRA [Suspect]
     Active Substance: BENRALIZUMAB
     Dosage: 30 MILLIGRAM PER MILLILITRE, Q8W
     Route: 065
  4. FASENRA [Suspect]
     Active Substance: BENRALIZUMAB
     Dosage: 30 MILLIGRAM PER MILLILITRE, Q8W

REACTIONS (4)
  - Device issue [Unknown]
  - Incorrect dose administered [Unknown]
  - Irritability [Unknown]
  - Daydreaming [Unknown]
